FAERS Safety Report 8405863-0 (Version None)
Quarter: 2012Q2

REPORT INFORMATION
  Report Type: 
  Country: None (occurrence: None)
  Receive Date: 20120529
  Receipt Date: 20051006
  Transmission Date: 20120825
  Serious: Yes (Hospitalization)
  Sender: FDA-Public Use
  Company Number: 15691-USA-05-2536

PATIENT
  Age: 76 Year
  Sex: Male

DRUGS (10)
  1. XIPAMID (XIPAMIDE) [Concomitant]
  2. CARVEDILOL [Concomitant]
  3. LONG ACTING INSULIN HUMAN (INSULIN) [Concomitant]
  4. SIMVASTATIN [Concomitant]
  5. PLAVIX [Concomitant]
  6. ATACAND /SWE/ (CANDESARTAN CILEXETIL) [Concomitant]
  7. TORSEMIDE [Concomitant]
  8. DIGOXIN [Concomitant]
  9. EPOETIN BETA (EPOETIN BETA) [Concomitant]
  10. TOLVAPTAN (TOLVAPTAN(V4.1)) 30MG [Suspect]
     Indication: CARDIAC FAILURE CONGESTIVE
     Dosage: 30 MG, QD, ORAL
     Route: 048
     Dates: start: 20050214

REACTIONS (5)
  - CONDITION AGGRAVATED [None]
  - CARDIAC FAILURE [None]
  - VENTRICULAR HYPERTROPHY [None]
  - AORTIC ARTERIOSCLEROSIS [None]
  - CARDIAC ANEURYSM [None]
